FAERS Safety Report 7926044 (Version 4)
Quarter: 2012Q4

REPORT INFORMATION
  Report Type: 
  Country: US (occurrence: US)
  Receive Date: 20110502
  Receipt Date: 20121010
  Transmission Date: 20130627
  Serious: No
  Sender: FDA-Public Use
  Company Number: US-ASTRAZENECA-2010SE52656

PATIENT
  Age: 80 Year
  Sex: Female

DRUGS (4)
  1. NEXIUM [Suspect]
     Route: 048
  2. CYMBALTA [Concomitant]
  3. ACIPHEX [Concomitant]
  4. BENTAL [Concomitant]

REACTIONS (8)
  - Ear pain [Unknown]
  - Sinus disorder [Unknown]
  - Generalised oedema [Recovered/Resolved]
  - Asthenia [Unknown]
  - Hypersomnia [Unknown]
  - Abdominal pain upper [Unknown]
  - Malaise [Unknown]
  - Drug dose omission [Unknown]
